FAERS Safety Report 7563293-8 (Version None)
Quarter: 2011Q2

REPORT INFORMATION
  Report Type: 
  Country: None (occurrence: None)
  Receive Date: 20110622
  Receipt Date: 20090623
  Transmission Date: 20111010
  Serious: Yes (Death, Hospitalization)
  Sender: FDA-Public Use
  Company Number: A0794427A

PATIENT
  Age: 62 Year
  Sex: Female

DRUGS (2)
  1. AVANDIA [Suspect]
     Dosage: 2MG TWICE PER DAY
     Route: 048
     Dates: start: 20040201, end: 20070501
  2. AVANDAMET [Suspect]
     Route: 048

REACTIONS (4)
  - INTRAOCULAR PRESSURE INCREASED [None]
  - BLINDNESS [None]
  - DEATH [None]
  - CARDIAC FAILURE CONGESTIVE [None]
